FAERS Safety Report 18748198 (Version 1)
Quarter: 2021Q1

REPORT INFORMATION
  Report Type: Spontaneous
  Country: JP (occurrence: JP)
  Receive Date: 20210116
  Receipt Date: 20210116
  Transmission Date: 20210419
  Serious: Yes (Other)
  Sender: FDA-Public Use
  Company Number: JP-ROCHE-2750571

PATIENT
  Age: 64 Year
  Sex: Male

DRUGS (2)
  1. TECENTRIQ [Suspect]
     Active Substance: ATEZOLIZUMAB
     Indication: HEPATOCELLULAR CARCINOMA
     Dosage: ON 24/DEC/2020, HE RECEIVED MOST RECENT DOSE OF IV ATEZOLIZUMAB PRIOR TO ADVERSE EVENT (AE). DOSAGE
     Route: 041
     Dates: start: 20201203, end: 20201224
  2. AVASTIN [Suspect]
     Active Substance: BEVACIZUMAB
     Indication: HEPATOCELLULAR CARCINOMA
     Dosage: DOSAGE WAS UNCERTAIN.
     Route: 041
     Dates: start: 20201203, end: 20201203

REACTIONS (2)
  - Proteinuria [Recovered/Resolved]
  - Haemobilia [Recovered/Resolved]

NARRATIVE: CASE EVENT DATE: 20210105
